FAERS Safety Report 5453522-9 (Version None)
Quarter: 2007Q3

REPORT INFORMATION
  Report Type: 
  Country: None (occurrence: None)
  Receive Date: 20070913
  Receipt Date: 20070904
  Transmission Date: 20080115
  Serious: Yes (Other)
  Sender: FDA-Public Use
  Company Number: 2007330113

PATIENT
  Sex: Male

DRUGS (1)
  1. PURELL UNSPECIFIED (ETHYL ALCOHOL) [Suspect]
     Dosage: SMALL BOTTLE, ONCE, ORAL
     Route: 048
     Dates: start: 20070904, end: 20070904

REACTIONS (3)
  - INCORRECT ROUTE OF DRUG ADMINISTRATION [None]
  - INTENTIONAL DRUG MISUSE [None]
  - NO ADVERSE DRUG REACTION [None]
